FAERS Safety Report 9384524 (Version 1)
Quarter: 2013Q2

REPORT INFORMATION
  Report Type: Spontaneous
  Country: JP (occurrence: None)
  Receive Date: 20130628
  Receipt Date: 20130628
  Transmission Date: 20140414
  Serious: Yes (Hospitalization)
  Sender: FDA-Public Use
  Company Number: 7219588

PATIENT
  Age: 70 Year
  Sex: Male

DRUGS (4)
  1. LEVOTHYROXINE [Suspect]
     Indication: HYPOTHYROIDISM
     Dosage: 25 MCG, 1 D
  2. LEVOTHYROXINE [Suspect]
     Indication: AUTOIMMUNE THYROIDITIS
     Dosage: 25 MCG, 1 D
  3. LITHIUM CARBONATE [Suspect]
     Indication: BIPOLAR DISORDER
     Dosage: 500 MG/DAY OVER PREVIOUS 3 MONTHS
  4. HYDROCORTISONE [Concomitant]

REACTIONS (12)
  - Cardiac tamponade [None]
  - Normochromic normocytic anaemia [None]
  - Hypothyroidism [None]
  - Autoimmune thyroiditis [None]
  - Blood albumin decreased [None]
  - Antipsychotic drug level below therapeutic [None]
  - Cardiomegaly [None]
  - Pleural effusion [None]
  - Pericardial effusion [None]
  - Toxicity to various agents [None]
  - Thyroiditis chronic [None]
  - Goitre [None]
